FAERS Safety Report 15799842 (Version 1)
Quarter: 2019Q1

REPORT INFORMATION
  Report Type: Spontaneous
  Country: JP (occurrence: JP)
  Receive Date: 20190108
  Receipt Date: 20190108
  Transmission Date: 20190417
  Serious: Yes (Other)
  Sender: FDA-Public Use
  Company Number: JP-INGENUS PHARMACEUTICALS, LLC-INF201812-001218

PATIENT
  Age: 61 Year
  Sex: Female

DRUGS (1)
  1. CABERGOLINE. [Suspect]
     Active Substance: CABERGOLINE
     Indication: PROLACTIN-PRODUCING PITUITARY TUMOUR

REACTIONS (4)
  - Tinnitus [Recovered/Resolved]
  - Arteriovenous fistula [Recovered/Resolved]
  - Subdural haematoma [Recovered/Resolved]
  - Conjunctival oedema [Recovered/Resolved]
